FAERS Safety Report 4289588-1 (Version None)
Quarter: 2004Q1

REPORT INFORMATION
  Report Type: 
  Country: None (occurrence: None)
  Receive Date: 20040203
  Receipt Date: 20030326
  Transmission Date: 20041129
  Serious: Yes (Other)
  Sender: FDA-Public Use
  Company Number: 200315392BWH

PATIENT
  Age: 37 Year
  Sex: Female
  Weight: 60.782 kg

DRUGS (2)
  1. AVELOX [Suspect]
     Indication: UPPER RESPIRATORY TRACT INFECTION
     Dosage: 400 MG, TOTAL DAILY, ORAL
     Route: 048
  2. ALLEGRA [Concomitant]

REACTIONS (3)
  - DIZZINESS [None]
  - DYSARTHRIA [None]
  - HYPOAESTHESIA [None]
